FAERS Safety Report 24004658 (Version 1)
Quarter: 2024Q2

REPORT INFORMATION
  Report Type: Spontaneous
  Country: SE (occurrence: SE)
  Receive Date: 20240624
  Receipt Date: 20240624
  Transmission Date: 20240716
  Serious: Yes (Death, Hospitalization)
  Sender: FDA-Public Use
  Company Number: SE-STERISCIENCE B.V.-2024-ST-000843

PATIENT
  Age: 73 Year
  Sex: Female

DRUGS (19)
  1. METOPROLOL [Suspect]
     Active Substance: METOPROLOL
     Indication: Hypertension
     Dosage: UNK
     Route: 042
  2. METOPROLOL [Suspect]
     Active Substance: METOPROLOL
     Dosage: UNK
     Route: 042
  3. MIDAZOLAM [Suspect]
     Active Substance: MIDAZOLAM
     Indication: Hypertension
     Dosage: UNK
     Route: 042
  4. LABETALOL [Suspect]
     Active Substance: LABETALOL\LABETALOL HYDROCHLORIDE
     Indication: Hypertension
     Dosage: BOLUS
     Route: 042
  5. CLONIDINE [Suspect]
     Active Substance: CLONIDINE
     Indication: Hypertension
     Dosage: 150 MILLIGRAM
     Route: 042
  6. AMLODIPINE [Suspect]
     Active Substance: AMLODIPINE BESYLATE
     Indication: Hypertension
     Dosage: 5 MILLIGRAM
  7. MINOXIDIL [Suspect]
     Active Substance: MINOXIDIL
     Indication: Hypertension
     Dosage: 2.5 MILLIGRAM
  8. ERYTHROMYCIN [Interacting]
     Active Substance: ERYTHROMYCIN
     Indication: Lower respiratory tract infection
     Dosage: UNK
     Route: 065
  9. VENLAFAXINE [Interacting]
     Active Substance: VENLAFAXINE HYDROCHLORIDE
     Indication: Depression
     Dosage: 225 MILLIGRAM
     Route: 065
  10. ESCITALOPRAM [Interacting]
     Active Substance: ESCITALOPRAM OXALATE
     Indication: Depression
     Dosage: 15 MILLIGRAM
     Route: 065
  11. FUROSEMIDE [Concomitant]
     Active Substance: FUROSEMIDE
     Indication: Hypertension
     Dosage: UNK
     Route: 042
  12. MORPHINE [Concomitant]
     Active Substance: MORPHINE
     Indication: Hypertension
     Dosage: 2.5 MILLIGRAM
     Route: 042
  13. CYPROHEPTADINE [Concomitant]
     Active Substance: CYPROHEPTADINE
     Indication: Hypertension
     Dosage: 12 MILLIGRAM
  14. CYPROHEPTADINE [Concomitant]
     Active Substance: CYPROHEPTADINE
     Dosage: 2MG EVERY 120MIN FOR 8H, DOSE DECREASED
  15. CALCIUM [Concomitant]
     Active Substance: CALCIUM
     Indication: Hyperkalaemia
     Dosage: UNK
     Route: 065
  16. SODIUM BICARBONATE [Concomitant]
     Active Substance: SODIUM BICARBONATE
     Indication: Hyperkalaemia
     Dosage: UNK
     Route: 065
  17. DEXTROSE [Concomitant]
     Active Substance: DEXTROSE\DEXTROSE MONOHYDRATE
     Indication: Hyperkalaemia
     Dosage: UNK
     Route: 065
  18. INSULIN NOS [Concomitant]
     Active Substance: INSULIN NOS
     Indication: Hyperkalaemia
     Dosage: UNK
     Route: 065
  19. ASPIRIN [Concomitant]
     Active Substance: ASPIRIN
     Indication: Antiplatelet therapy
     Dosage: UNK
     Route: 065

REACTIONS (2)
  - Drug ineffective [Fatal]
  - Off label use [Unknown]
